FAERS Safety Report 7641809-0 (Version None)
Quarter: 2011Q3

REPORT INFORMATION
  Report Type: 
  Country: None (occurrence: None)
  Receive Date: 20110728
  Receipt Date: 20110719
  Transmission Date: 20111222
  Serious: Yes (Disabling, Other)
  Sender: FDA-Public Use
  Company Number: FR-ROCHE-778608

PATIENT
  Sex: Female
  Weight: 57 kg

DRUGS (2)
  1. COPEGUS [Suspect]
     Indication: HEPATITIS C
     Dosage: 1000 MG DAILY
     Route: 048
     Dates: start: 20090216, end: 20100101
  2. PEGASYS [Suspect]
     Indication: HEPATITIS C
     Route: 042
     Dates: start: 20090216, end: 20100101

REACTIONS (4)
  - FATIGUE [None]
  - DEPRESSION [None]
  - VASCULITIS [None]
  - ATONIC SEIZURES [None]
